FAERS Safety Report 23657486 (Version 3)
Quarter: 2025Q2

REPORT INFORMATION
  Report Type: Report from Study
  Country: US (occurrence: US)
  Receive Date: 20240321
  Receipt Date: 20250529
  Transmission Date: 20250716
  Serious: Yes (Hospitalization)
  Sender: SCPHARMACEUTICALS
  Company Number: US-SCPHARMACEUTICALS-2024-SCPH-US000091

PATIENT

DRUGS (1)
  1. FUROSCIX [Suspect]
     Active Substance: FUROSEMIDE
     Indication: Chronic left ventricular failure
     Route: 058

REACTIONS (1)
  - Dyspnoea [Unknown]
